FAERS Safety Report 7843402-3 (Version None)
Quarter: 2011Q4

REPORT INFORMATION
  Report Type: 
  Country: None (occurrence: None)
  Receive Date: 20111025
  Receipt Date: 20111017
  Transmission Date: 20120403
  Serious: Yes (Other)
  Sender: FDA-Public Use
  Company Number: FR-ROCHE-1006635

PATIENT
  Sex: Male

DRUGS (2)
  1. AVASTIN [Concomitant]
  2. LUCENTIS [Suspect]
     Indication: AGE-RELATED MACULAR DEGENERATION
     Dosage: START DATE 01//2009
     Route: 050

REACTIONS (2)
  - DERMATITIS BULLOUS [None]
  - PHOTOSENSITIVITY REACTION [None]
